FAERS Safety Report 16476913 (Version 1)
Quarter: 2019Q2

REPORT INFORMATION
  Report Type: Spontaneous
  Country: CA (occurrence: CA)
  Receive Date: 20190626
  Receipt Date: 20190626
  Transmission Date: 20190711
  Serious: Yes (Other)
  Sender: FDA-Public Use
  Company Number: CA-AUROBINDO-AUR-APL-2019-034853

PATIENT

DRUGS (1)
  1. ESCITALOPRAM [Suspect]
     Active Substance: ESCITALOPRAM OXALATE
     Indication: ANXIETY
     Dosage: 10 MILLIGRAM, ONCE A DAY
     Route: 048

REACTIONS (9)
  - Myalgia [Unknown]
  - Heart rate increased [Unknown]
  - Fatigue [Unknown]
  - Nausea [Unknown]
  - Palpitations [Unknown]
  - Heart rate irregular [Unknown]
  - Dizziness [Unknown]
  - Headache [Unknown]
  - Confusional state [Unknown]
